FAERS Safety Report 8303481 (Version 3)
Quarter: 2012Q4

REPORT INFORMATION
  Report Type: 
  Country: JP (occurrence: JP)
  Receive Date: 20111220
  Receipt Date: 20121019
  Transmission Date: 20130627
  Serious: Yes (Other)
  Sender: FDA-Public Use
  Company Number: PHHY2011JP105391

PATIENT
  Age: 46 Year
  Sex: Female

DRUGS (2)
  1. CICLOSPORIN [Suspect]
     Indication: APLASTIC ANAEMIA
     Dosage: 5 mg/kg, per day
     Route: 042
     Dates: start: 20110420, end: 201106
  2. THYMOGLOBULINE [Concomitant]
     Indication: APLASTIC ANAEMIA
     Dosage: 3.5 mg/kg, UNK
     Dates: start: 20110420

REACTIONS (9)
  - Gastritis erosive [Recovering/Resolving]
  - Pancytopenia [Not Recovered/Not Resolved]
  - Gastric ulcer [Recovering/Resolving]
  - Cytomegalovirus infection [Recovered/Resolved]
  - Epstein-Barr virus infection [Recovered/Resolved]
  - Herpes virus infection [Recovered/Resolved]
  - Pyrexia [Recovered/Resolved]
  - Papule [Recovered/Resolved]
  - Rash [Recovered/Resolved]
